FAERS Safety Report 7285282-3 (Version None)
Quarter: 2011Q1

REPORT INFORMATION
  Report Type: 
  Country: None (occurrence: None)
  Receive Date: 20110204
  Receipt Date: 20110204
  Transmission Date: 20110831
  Serious: No
  Sender: FDA-Public Use
  Company Number: None

PATIENT
  Age: 67 Year
  Sex: Male
  Weight: 103 kg

DRUGS (1)
  1. HYDROCODONE BITARTRATE AND ACETAMINOPHEN [Suspect]
     Dosage: 1-2 TAB PRN PO
     Route: 048
     Dates: start: 20100612, end: 20100616

REACTIONS (6)
  - DIZZINESS [None]
  - NAUSEA [None]
  - VOMITING [None]
  - HYPERHIDROSIS [None]
  - CONFUSIONAL STATE [None]
  - TREMOR [None]
